FAERS Safety Report 7631923-8 (Version None)
Quarter: 2011Q3

REPORT INFORMATION
  Report Type: 
  Country: None (occurrence: None)
  Receive Date: 20110725
  Receipt Date: 20110512
  Transmission Date: 20111222
  Serious: No
  Sender: FDA-Public Use
  Company Number: US-BRISTOL-MYERS SQUIBB COMPANY-15741424

PATIENT
  Age: 55 Year
  Sex: Female
  Weight: 52 kg

DRUGS (1)
  1. WARFARIN SODIUM [Suspect]
     Indication: THROMBOSIS
     Dosage: 5 MG ON TUESDAY AND THURSDAY. 2.5 MG ON OTHER DAYS OF THE WEAK.

REACTIONS (4)
  - HOT FLUSH [None]
  - FATIGUE [None]
  - ALOPECIA [None]
  - PALLOR [None]
